FAERS Safety Report 25904522 (Version 1)
Quarter: 2025Q4

REPORT INFORMATION
  Report Type: Spontaneous
  Country: US (occurrence: US)
  Receive Date: 20251010
  Receipt Date: 20251010
  Transmission Date: 20260118
  Serious: Yes (Life-Threatening, Hospitalization, Other)
  Sender: Onesource Specialty Pharma
  Company Number: US-STRIDES ARCOLAB LIMITED-2025OS000889

PATIENT
  Age: 50 Year
  Sex: Male

DRUGS (6)
  1. BUPIVACAINE [Suspect]
     Active Substance: BUPIVACAINE
     Indication: Pain
     Dosage: 3.75 MG/ML VIA INTRATHECAL PUMP
     Route: 037
  2. BUPIVACAINE [Suspect]
     Active Substance: BUPIVACAINE
     Indication: Muscle spasticity
  3. MORPHINE [Suspect]
     Active Substance: MORPHINE
     Indication: Pain
     Dosage: 10 MG/ML VIA INTRATHECAL PUMP
     Route: 037
  4. MORPHINE [Suspect]
     Active Substance: MORPHINE
     Indication: Muscle spasticity
  5. BACLOFEN [Suspect]
     Active Substance: BACLOFEN
     Indication: Pain
     Dosage: 200 MCG/ML VIA INTRATHECAL PUMP
     Route: 037
  6. BACLOFEN [Suspect]
     Active Substance: BACLOFEN
     Indication: Muscle spasticity

REACTIONS (4)
  - Loss of consciousness [None]
  - Accidental overdose [None]
  - Product administration error [Unknown]
  - Off label use [Unknown]
